FAERS Safety Report 9325474 (Version 2)
Quarter: 2013Q3

REPORT INFORMATION
  Report Type: Spontaneous
  Country: DE (occurrence: DE)
  Receive Date: 20130604
  Receipt Date: 20130730
  Transmission Date: 20140515
  Serious: No
  Sender: FDA-Public Use
  Company Number: DE-ROCHE-1231742

PATIENT
  Sex: Male
  Weight: 85 kg

DRUGS (3)
  1. ROACTEMRA [Suspect]
     Indication: POLYARTHRITIS
     Route: 042
     Dates: start: 20130429
  2. ALLOPURINOL [Concomitant]
     Indication: HYPERURICAEMIA
     Route: 048
     Dates: start: 20130624
  3. MELOXICAM [Concomitant]
     Indication: POLYARTHRITIS
     Route: 048
     Dates: start: 20130423

REACTIONS (1)
  - C-reactive protein increased [Recovered/Resolved]
